FAERS Safety Report 7552982-7 (Version None)
Quarter: 2011Q2

REPORT INFORMATION
  Report Type: 
  Country: None (occurrence: None)
  Receive Date: 20110616
  Receipt Date: 20110608
  Transmission Date: 20111010
  Serious: Yes (Hospitalization)
  Sender: FDA-Public Use
  Company Number: US-US-EMD SERONO, INC.-7064426

PATIENT
  Sex: Female
  Weight: 75 kg

DRUGS (1)
  1. REBIF [Suspect]
     Indication: PRODUCT USED FOR UNKNOWN INDICATION
     Route: 058
     Dates: start: 20090625

REACTIONS (8)
  - DECREASED APPETITE [None]
  - HERPES ZOSTER [None]
  - INSOMNIA [None]
  - ASTHENIA [None]
  - INJECTION SITE ERYTHEMA [None]
  - VIITH NERVE PARALYSIS [None]
  - INFLUENZA LIKE ILLNESS [None]
  - THYROID DISORDER [None]
